FAERS Safety Report 17620899 (Version 9)
Quarter: 2020Q4

REPORT INFORMATION
  Report Type: Spontaneous
  Country: JP (occurrence: JP)
  Receive Date: 20200403
  Receipt Date: 20201123
  Transmission Date: 20210113
  Serious: Yes (Death, Other)
  Sender: FDA-Public Use
  Company Number: JP-PFIZER INC-2020138012

PATIENT
  Age: 84 Year
  Sex: Female

DRUGS (12)
  1. BAKTAR [Suspect]
     Active Substance: SULFAMETHOXAZOLE\TRIMETHOPRIM
     Dosage: UNK
     Dates: end: 20200403
  2. MICARDIS [Suspect]
     Active Substance: TELMISARTAN
     Dosage: UNK
  3. AMLODIPINE BESILATE/TELMISARTAN [Suspect]
     Active Substance: AMLODIPINE\TELMISARTAN
     Dosage: UNK
  4. TAKEPRON [Suspect]
     Active Substance: LANSOPRAZOLE
     Dosage: UNK
  5. DRAMAMINE [Concomitant]
     Active Substance: DIMENHYDRINATE
     Dosage: 50 MG, DAILY
  6. DRAMAMINE [Concomitant]
     Active Substance: DIMENHYDRINATE
     Dosage: 100 MG, DAILY
  7. TAKECAB [Concomitant]
     Active Substance: VONOPRAZAN FUMARATE
     Dosage: UNK
     Dates: start: 20200327
  8. PROGRAF [Suspect]
     Active Substance: TACROLIMUS
     Indication: MYASTHENIA GRAVIS
     Dosage: UNK, 1X/DAY
     Route: 048
     Dates: end: 20200403
  9. AMLODIPINE [AMLODIPINE BESILATE] [Concomitant]
     Active Substance: AMLODIPINE BESYLATE
     Dosage: UNK
     Dates: start: 20200327
  10. CELECOX [Suspect]
     Active Substance: CELECOXIB
     Indication: FRACTURE
     Dosage: 100 MG, 1X/DAY
     Route: 048
  11. PLAVIX [Suspect]
     Active Substance: CLOPIDOGREL BISULFATE
     Dosage: UNK
  12. NEUROTROPIN [RABBIT VACCINIA EXTRACT] [Concomitant]
     Active Substance: ORYCTOLAGUS CUNICULUS SKIN
     Dosage: UNK
     Dates: start: 20200327

REACTIONS (1)
  - Interstitial lung disease [Unknown]

NARRATIVE: CASE EVENT DATE: 20200313
